FAERS Safety Report 6260447-8 (Version None)
Quarter: 2009Q3

REPORT INFORMATION
  Report Type: 
  Country: None (occurrence: None)
  Receive Date: 20090708
  Receipt Date: 20090630
  Transmission Date: 20100115
  Serious: Yes (Death, Hospitalization)
  Sender: FDA-Public Use
  Company Number: NL-JNJFOC-20090700225

PATIENT
  Age: 51 Year
  Sex: Female

DRUGS (6)
  1. ACETAMINOPHEN [Suspect]
     Route: 048
  2. ACETAMINOPHEN [Suspect]
     Indication: ABDOMINAL PAIN
     Route: 048
  3. ALCOHOL [Suspect]
     Indication: DRUG USE FOR UNKNOWN INDICATION
     Dosage: 3-4 BOTTLES OF WINE A WEEK
     Route: 048
  4. CALCIUM CARBONATE [Concomitant]
  5. TEMAZEPAM [Concomitant]
  6. ALENDRONATE SODIUM [Concomitant]

REACTIONS (4)
  - ACUTE HEPATIC FAILURE [None]
  - DRUG ABUSE [None]
  - METABOLIC ACIDOSIS [None]
  - MULTI-ORGAN FAILURE [None]
